FAERS Safety Report 24808556 (Version 1)
Quarter: 2025Q1

REPORT INFORMATION
  Report Type: Report from Study
  Country: US (occurrence: US)
  Receive Date: 20250106
  Receipt Date: 20250106
  Transmission Date: 20250408
  Serious: Yes (Other)
  Sender: ALEXION PHARMACEUTICALS
  Company Number: US-ASTRAZENECA-202412USA024178US

PATIENT
  Age: 31 Year

DRUGS (4)
  1. ANIFROLUMAB [Suspect]
     Active Substance: ANIFROLUMAB
     Indication: Systemic lupus erythematosus
  2. ANIFROLUMAB [Suspect]
     Active Substance: ANIFROLUMAB
     Route: 042
  3. ANIFROLUMAB [Suspect]
     Active Substance: ANIFROLUMAB
  4. ANIFROLUMAB [Suspect]
     Active Substance: ANIFROLUMAB
     Route: 042

REACTIONS (5)
  - Influenza [Unknown]
  - Weight decreased [Unknown]
  - Heart rate increased [Unknown]
  - Asthenia [Unknown]
  - Product dose omission issue [Unknown]
